FAERS Safety Report 26074817 (Version 3)
Quarter: 2025Q4

REPORT INFORMATION
  Report Type: Spontaneous
  Country: CN (occurrence: CN)
  Receive Date: 20251121
  Receipt Date: 20251208
  Transmission Date: 20260118
  Serious: Yes (Other)
  Sender: BAYER HEALTHCARE PHARMACEUTICALS INC.
  Company Number: CN-BAYER-2025A151673

PATIENT
  Age: 50 Year
  Sex: Female

DRUGS (1)
  1. MIRENA [Suspect]
     Active Substance: LEVONORGESTREL
     Dosage: 20?G/DAY
     Route: 015
     Dates: start: 20250830, end: 20251105

REACTIONS (38)
  - Device allergy [Not Recovered/Not Resolved]
  - Pruritus [Recovering/Resolving]
  - Pruritus genital [Recovering/Resolving]
  - Angioedema [Not Recovered/Not Resolved]
  - Pain in extremity [Recovering/Resolving]
  - Tricuspid valve incompetence [None]
  - Aortic arteriosclerosis [None]
  - Sinus tachycardia [Not Recovered/Not Resolved]
  - Arrhythmia [Not Recovered/Not Resolved]
  - Nasal obstruction [Recovered/Resolved]
  - Dyspepsia [Recovering/Resolving]
  - Chest discomfort [Recovering/Resolving]
  - Cough [Recovered/Resolved]
  - Vulvovaginal pruritus [Recovering/Resolving]
  - White blood cell count increased [Recovered/Resolved]
  - Neutrophil percentage increased [Recovered/Resolved]
  - Lymphocyte percentage decreased [Recovered/Resolved]
  - Neutrophil count increased [Recovered/Resolved]
  - Lymphocyte count decreased [Recovered/Resolved]
  - Monocyte count increased [Recovered/Resolved]
  - Haemoglobin decreased [Not Recovered/Not Resolved]
  - Haematocrit decreased [Recovered/Resolved]
  - Mean cell volume decreased [Recovered/Resolved]
  - Mean cell haemoglobin decreased [Not Recovered/Not Resolved]
  - Mean cell haemoglobin concentration decreased [Not Recovered/Not Resolved]
  - Red cell distribution width increased [Not Recovered/Not Resolved]
  - Plateletcrit increased [Recovered/Resolved]
  - Platelet count increased [Recovered/Resolved]
  - Ovarian cyst [None]
  - Supraventricular extrasystoles [Not Recovered/Not Resolved]
  - Palpitations [None]
  - Left ventricular dysfunction [None]
  - Lung opacity [Not Recovered/Not Resolved]
  - Pulmonary mass [Not Recovered/Not Resolved]
  - Pulmonary imaging procedure abnormal [Not Recovered/Not Resolved]
  - Lymphadenopathy mediastinal [Recovered/Resolved]
  - Dyschezia [None]
  - Rash [Not Recovered/Not Resolved]

NARRATIVE: CASE EVENT DATE: 20250101
